FAERS Safety Report 9248950 (Version 1)
Quarter: 2013Q1

REPORT INFORMATION
  Report Type: Spontaneous
  Country: US (occurrence: None)
  Receive Date: 20130305
  Receipt Date: 20130305
  Transmission Date: 20140127
  Serious: Yes (Hospitalization)
  Sender: FDA-Public Use
  Company Number: 163-21880-12053103

PATIENT
  Age: 73 Year
  Sex: Female
  Weight: 68.95 kg

DRUGS (15)
  1. REVLIMID [Suspect]
     Indication: PLASMA CELL MYELOMA
     Route: 048
     Dates: start: 200702
  2. ADALAT (NIFEDIPINE) [Concomitant]
  3. ADVAIR (SERETIDE MITE) [Concomitant]
  4. ALBUTEROL (SALBUTAMOL) [Concomitant]
  5. COUMADIN (WARFARIN SODIUM) [Concomitant]
  6. FENTANYL (FENTANYL) [Concomitant]
  7. K-DUR (POTASSIUM CHLORIDE) [Concomitant]
  8. NEXIUM [Concomitant]
  9. NYSTATIN (NYSTATIN) [Concomitant]
  10. PREDNISONE (PREDNISONE) [Concomitant]
  11. TYLENOL (PARACETAMOL) [Concomitant]
  12. VITAMIN D (ERGOCALCIFEROL) [Concomitant]
  13. ZOCOR (SIMVASTATIN) [Concomitant]
  14. ZOMETA (ZOLEDRONIC ACID) [Concomitant]
  15. SPIRIVA (TIOTROPIUM BROMIDE) [Concomitant]

REACTIONS (2)
  - Pneumonia [None]
  - Candida infection [None]
